FAERS Safety Report 5282887-6 (Version None)
Quarter: 2007Q2

REPORT INFORMATION
  Report Type: 
  Country: None (occurrence: None)
  Receive Date: 20070402
  Receipt Date: 20070319
  Transmission Date: 20071010
  Serious: Yes (Other)
  Sender: FDA-Public Use
  Company Number: PHNU2007DE00886

PATIENT
  Age: 61 Year
  Sex: Male
  Weight: 125 kg

DRUGS (3)
  1. VALSARTAN AND HYDROCHLOROTHIAZIDE [Suspect]
     Indication: HYPERTENSION
     Dosage: 1 DF/D
     Route: 048
     Dates: start: 20000801, end: 20001201
  2. NORVASC [Suspect]
     Indication: HYPERTENSION
     Dosage: 5 MG, BID
     Route: 048
     Dates: start: 20000801, end: 20001201
  3. CATAPRES [Concomitant]
     Indication: HYPERTENSION
     Dosage: 300 MG, UNK
     Route: 048

REACTIONS (4)
  - ARTHROPATHY [None]
  - JOINT EFFUSION [None]
  - MYALGIA [None]
  - OSTEOARTHRITIS [None]
